FAERS Safety Report 8478164-2 (Version None)
Quarter: 2012Q2

REPORT INFORMATION
  Report Type: 
  Country: None (occurrence: None)
  Receive Date: 20120629
  Receipt Date: 20120626
  Transmission Date: 20120825
  Serious: Yes (Death, Hospitalization)
  Sender: FDA-Public Use
  Company Number: PHHY2012BR055019

PATIENT
  Sex: Male

DRUGS (2)
  1. STALEVO 100 [Suspect]
     Dosage: 150/37.5/200 MG, 1 TABLET IN THE MORNING AND 1 TABLET AT AFTERNOON
     Route: 048
  2. STALEVO 100 [Suspect]
     Indication: PARKINSON'S DISEASE
     Dosage: 100/25/200 MG, 1 TABLET IN THE MORNING AND 1 TABLET AT AFTERNOON
     Route: 048

REACTIONS (7)
  - FEMUR FRACTURE [None]
  - DYSPNOEA [None]
  - PULMONARY SEPSIS [None]
  - FALL [None]
  - CONVULSION [None]
  - FATIGUE [None]
  - PNEUMONIA [None]
